FAERS Safety Report 8212377-X (Version None)
Quarter: 2012Q1

REPORT INFORMATION
  Report Type: 
  Country: None (occurrence: None)
  Receive Date: 20120315
  Receipt Date: 20120313
  Transmission Date: 20120608
  Serious: Yes (Death)
  Sender: FDA-Public Use
  Company Number: US-MEDIMMUNE-MEDI-0015145

PATIENT
  Sex: Male

DRUGS (8)
  1. LASIX [Concomitant]
  2. ENALAPRIL [Concomitant]
  3. SYNAGIS [Suspect]
     Indication: PREMATURE BABY
  4. ZANTAC [Concomitant]
  5. URSODIOL [Concomitant]
  6. SYNAGIS [Suspect]
     Indication: VENTRICULAR SEPTAL DEFECT
     Route: 030
  7. SYNAGIS [Suspect]
     Indication: TRACHEO-OESOPHAGEAL FISTULA
  8. POLY-VI-FLOR [Concomitant]

REACTIONS (1)
  - DEATH [None]
